FAERS Safety Report 10460456 (Version 1)
Quarter: 2014Q3

REPORT INFORMATION
  Report Type: Spontaneous
  Country: US (occurrence: US)
  Receive Date: 20140917
  Receipt Date: 20140917
  Transmission Date: 20150326
  Serious: No
  Sender: FDA-Public Use
  Company Number: US-ASTRAZENECA-2014SE67742

PATIENT
  Age: 61 Year
  Sex: Female
  Weight: 62.1 kg

DRUGS (6)
  1. BUDESONIDE. [Suspect]
     Active Substance: BUDESONIDE
     Indication: COLITIS MICROSCOPIC
     Route: 048
     Dates: start: 20140601, end: 20140808
  2. BUDESONIDE. [Suspect]
     Active Substance: BUDESONIDE
     Indication: CROHN^S DISEASE
     Route: 048
     Dates: start: 20140601, end: 20140808
  3. BUDESONIDE. [Suspect]
     Active Substance: BUDESONIDE
     Indication: CROHN^S DISEASE
     Route: 048
     Dates: start: 20140825, end: 20140828
  4. BUDESONIDE. [Suspect]
     Active Substance: BUDESONIDE
     Indication: COLITIS MICROSCOPIC
     Route: 048
     Dates: start: 20140825, end: 20140828
  5. BUDESONIDE. [Suspect]
     Active Substance: BUDESONIDE
     Indication: CROHN^S DISEASE
     Route: 048
     Dates: start: 20140829
  6. BUDESONIDE. [Suspect]
     Active Substance: BUDESONIDE
     Indication: COLITIS MICROSCOPIC
     Route: 048
     Dates: start: 20140829

REACTIONS (4)
  - Intentional product misuse [Unknown]
  - Disease recurrence [Unknown]
  - Alopecia [Not Recovered/Not Resolved]
  - Off label use [Not Recovered/Not Resolved]

NARRATIVE: CASE EVENT DATE: 201406
